FAERS Safety Report 8154044 (Version 6)
Quarter: 2013Q4

REPORT INFORMATION
  Report Type: Spontaneous
  Country: US (occurrence: US)
  Receive Date: 20110923
  Receipt Date: 20131211
  Transmission Date: 20140711
  Serious: No
  Sender: FDA-Public Use
  Company Number: US-PFIZER INC-2011224681

PATIENT
  Age: 50 Year
  Sex: Female

DRUGS (12)
  1. SUTENT [Suspect]
     Indication: PANCREATIC NEUROENDOCRINE TUMOUR
     Dosage: 37.5 MG, 1X/DAY
     Route: 048
     Dates: start: 201102, end: 201110
  2. SUTENT [Suspect]
     Dosage: 25 MG, DAILY
     Route: 048
     Dates: start: 201209
  3. SUTENT [Suspect]
     Dosage: ONE DAY OF 25 MG FOLLOWED BY TWO DAYS OF 12.5 MG
  4. LISINOPRIL [Concomitant]
     Dosage: UNK
  5. LOPERAMIDE [Concomitant]
     Dosage: UNK
  6. METFORMIN [Concomitant]
     Dosage: UNK
  7. PRILOSEC [Concomitant]
     Dosage: UNK
  8. FISH OIL [Concomitant]
     Dosage: UNK
  9. BIOTIN [Concomitant]
     Dosage: UNK
  10. VITAMIN D3 [Concomitant]
     Dosage: UNK
  11. LEVEMIR INSULIN [Concomitant]
     Dosage: UNK
  12. PROBIOTICS [Concomitant]
     Dosage: UNK

REACTIONS (14)
  - Oncologic complication [Recovering/Resolving]
  - Complicated migraine [Recovering/Resolving]
  - Eye disorder [Recovering/Resolving]
  - Oral pain [Recovering/Resolving]
  - Memory impairment [Recovering/Resolving]
  - Aphasia [Unknown]
  - Skin discolouration [Unknown]
  - Constipation [Unknown]
  - Visual impairment [Unknown]
  - Migraine [Recovered/Resolved]
  - Hypoaesthesia [Unknown]
  - Abdominal pain [Unknown]
  - Pain in extremity [Unknown]
  - Muscle spasms [Unknown]
